FAERS Safety Report 4546748-X (Version None)
Quarter: 2005Q1

REPORT INFORMATION
  Report Type: 
  Country: None (occurrence: None)
  Receive Date: 20050105
  Receipt Date: 20041223
  Transmission Date: 20050727
  Serious: Yes (Other)
  Sender: FDA-Public Use
  Company Number: 2004US001214

PATIENT
  Age: 19 Year
  Sex: Male

DRUGS (11)
  1. PROGRAF [Suspect]
     Indication: RENAL TRANSPLANT
     Dosage: UNK
     Route: 065
     Dates: start: 20031210
  2. EPOGEN [Concomitant]
  3. EPOIETIN (EPOETIN ALFA) [Concomitant]
  4. MYCOPHENOLATE MOFETIL [Concomitant]
  5. PREDNISONE [Concomitant]
  6. BACTRIM [Concomitant]
  7. GANCICLOVIR [Concomitant]
  8. FOLIC ACID [Concomitant]
  9. ROCALTROL [Concomitant]
  10. COTRIM [Concomitant]
  11. DACLIZUMAB [Concomitant]

REACTIONS (2)
  - APLASIA PURE RED CELL [None]
  - DRUG INEFFECTIVE [None]
